FAERS Safety Report 4698078-3 (Version None)
Quarter: 2005Q2

REPORT INFORMATION
  Report Type: 
  Country: None (occurrence: None)
  Receive Date: 20050621
  Receipt Date: 20050609
  Transmission Date: 20051028
  Serious: Yes (Other)
  Sender: FDA-Public Use
  Company Number: 2005087361

PATIENT
  Age: 58 Year
  Sex: Male

DRUGS (3)
  1. NIFEDIPINE [Suspect]
     Indication: ILL-DEFINED DISORDER
     Dosage: 30 MG (DAILY), ORAL
     Route: 048
     Dates: start: 20050307, end: 20050506
  2. METOPROLOL TARTRATE [Concomitant]
  3. COZAAR [Concomitant]

REACTIONS (1)
  - SUICIDAL IDEATION [None]
